FAERS Safety Report 9209472 (Version 1)
Quarter: 2013Q1

REPORT INFORMATION
  Report Type: Spontaneous
  Country: US (occurrence: None)
  Receive Date: 20120809
  Receipt Date: 20120809
  Transmission Date: 20140127
  Serious: No
  Sender: FDA-Public Use
  Company Number: 2012032001

PATIENT
  Sex: Female

DRUGS (1)
  1. BERINERT [Suspect]
     Indication: HEREDITARY ANGIOEDEMA
     Dates: start: 201203

REACTIONS (1)
  - Therapeutic response decreased [None]
